FAERS Safety Report 7511410-8 (Version None)
Quarter: 2011Q2

REPORT INFORMATION
  Report Type: 
  Country: None (occurrence: None)
  Receive Date: 20110531
  Receipt Date: 20110519
  Transmission Date: 20111010
  Serious: Yes (Other)
  Sender: FDA-Public Use
  Company Number: PHHY2011BR43335

PATIENT
  Sex: Female

DRUGS (2)
  1. FORMOTEROL FUMARATE [Suspect]
     Dosage: 12/200 UG
  2. FORMOTEROL FUMARATE [Suspect]
     Dosage: 12/400 UG

REACTIONS (2)
  - TREMOR [None]
  - DEAFNESS [None]
